FAERS Safety Report 7676757-3 (Version None)
Quarter: 2011Q3

REPORT INFORMATION
  Report Type: 
  Country: None (occurrence: None)
  Receive Date: 20110811
  Receipt Date: 20110804
  Transmission Date: 20111222
  Serious: Yes (Hospitalization)
  Sender: FDA-Public Use
  Company Number: US-PFIZER INC-2010166460

PATIENT
  Sex: Female
  Weight: 91.1 kg

DRUGS (14)
  1. ALBUTEROL [Concomitant]
     Dosage: UNK
     Route: 055
     Dates: start: 20000101
  2. IBUPROFEN [Suspect]
     Indication: OSTEOARTHRITIS
     Dosage: 600 MG, 3X/DAY
     Route: 048
     Dates: start: 20070907, end: 20101020
  3. NEXIUM [Concomitant]
     Dosage: UNK
     Dates: start: 20070907, end: 20101020
  4. BENAZEPRIL [Concomitant]
     Dosage: UNK
     Route: 048
     Dates: start: 20080415
  5. FUROSEMIDE [Concomitant]
     Dosage: UNK
     Route: 048
     Dates: start: 20040101
  6. CENTRUM [Concomitant]
     Dosage: UNK
     Route: 048
     Dates: start: 19870101
  7. LOTREL [Concomitant]
     Dosage: UNK
     Route: 048
     Dates: start: 20050101
  8. GLUCOTROL [Concomitant]
     Dosage: UNK
     Route: 048
     Dates: start: 20090505
  9. ZYRTEC [Concomitant]
     Dosage: UNK
     Route: 048
     Dates: start: 20000101
  10. CALCIUM [Concomitant]
     Dosage: UNK
     Route: 048
     Dates: start: 20060801
  11. METFORMIN [Concomitant]
     Dosage: UNK
     Route: 048
     Dates: start: 20090505
  12. IBUPROFEN [Suspect]
     Indication: RHEUMATOID ARTHRITIS
  13. NORVASC [Concomitant]
     Dosage: UNK
     Route: 048
     Dates: start: 20080415
  14. CLONIDINE [Concomitant]
     Dosage: UNK
     Route: 048
     Dates: start: 20090505

REACTIONS (1)
  - COLONIC POLYP [None]
